FAERS Safety Report 17988450 (Version 1)
Quarter: 2020Q3

REPORT INFORMATION
  Report Type: Spontaneous
  Country: US (occurrence: US)
  Receive Date: 20200707
  Receipt Date: 20200707
  Transmission Date: 20201103
  Serious: No
  Sender: FDA-Public Use
  Company Number: US-GLENMARK PHARMACEUTICALS-2020GMK047106

PATIENT

DRUGS (1)
  1. ESTRADIOL VAGINAL INSERTS USP [Suspect]
     Active Substance: ESTRADIOL
     Indication: DYSPAREUNIA
     Dosage: UNK (EVERY DAY FOR 3 WEEKS AND THEN 2 TIMES A WEEK FOREVER)
     Route: 067
     Dates: start: 20200326

REACTIONS (1)
  - Product prescribing error [Unknown]
